FAERS Safety Report 10700470 (Version 1)
Quarter: 2015Q1

REPORT INFORMATION
  Report Type: Spontaneous
  Country: US (occurrence: US)
  Receive Date: 20150109
  Receipt Date: 20150109
  Transmission Date: 20150721
  Serious: Yes (Congenital Anomaly, Other)
  Sender: FDA-Public Use
  Company Number: US-PFIZER INC-2015006352

PATIENT
  Sex: Male

DRUGS (1)
  1. ZOLOFT [Suspect]
     Active Substance: SERTRALINE HYDROCHLORIDE
     Dosage: UNK
     Route: 064

REACTIONS (4)
  - Maternal exposure during pregnancy [Not Recovered/Not Resolved]
  - Pulmonary artery stenosis congenital [Not Recovered/Not Resolved]
  - Coarctation of the aorta [Not Recovered/Not Resolved]
  - Congenital anomaly [Not Recovered/Not Resolved]

NARRATIVE: CASE EVENT DATE: 20120817
